FAERS Safety Report 5599587-5 (Version None)
Quarter: 2008Q1

REPORT INFORMATION
  Report Type: 
  Country: None (occurrence: None)
  Receive Date: 20080123
  Receipt Date: 20080114
  Transmission Date: 20080703
  Serious: Yes (Hospitalization, Other)
  Sender: FDA-Public Use
  Company Number: PHNU2008DE00537

PATIENT
  Age: 74 Year
  Sex: Male

DRUGS (27)
  1. FLUVASTATIN [Suspect]
     Indication: CORONARY ARTERY DISEASE
     Dosage: 1 DF, QD
     Route: 048
     Dates: start: 20060115
  2. FUROSEMIDE [Suspect]
     Indication: RENAL FAILURE
     Dosage: 40-20-0MG/DAY
     Route: 049
     Dates: start: 20031003, end: 20031014
  3. LENDORMIN [Suspect]
     Indication: SLEEP DISORDER
     Route: 048
     Dates: start: 20031005, end: 20031005
  4. LENDORMIN [Suspect]
     Route: 048
     Dates: start: 20031007, end: 20031007
  5. ALDACTONE [Suspect]
     Indication: RENAL FAILURE
     Dosage: UNK, PRN
     Route: 048
     Dates: start: 20031011, end: 20031012
  6. METOPROLOL SUCCINATE [Suspect]
     Indication: HYPERTENSION
     Dosage: 0.5 DF, QD
     Route: 048
     Dates: start: 20031011
  7. RAMIPRIL [Suspect]
     Indication: HYPERTENSION
     Dosage: 2.5 MG, QD
     Route: 048
     Dates: start: 20031012
  8. CRANOC (LICENSED, FUJISAWA DEUTSCHLAND) [Suspect]
     Indication: CORONARY ARTERY DISEASE
     Dosage: 20 MG, QD
     Dates: start: 20030926, end: 20030926
  9. CRANOC (LICENSED, FUJISAWA DEUTSCHLAND) [Suspect]
     Dosage: 20 MG, QD
     Route: 048
     Dates: start: 20031009, end: 20031014
  10. FENISTIL (NCH) [Suspect]
     Indication: RASH
     Dosage: 1 DF, QD
     Route: 048
     Dates: start: 20030928
  11. CORDAREX [Suspect]
     Indication: ARRHYTHMIA
     Dosage: 1050MG/DAY
     Route: 042
     Dates: start: 20030916, end: 20030922
  12. ZOCOR [Suspect]
     Indication: CORONARY ARTERY DISEASE
     Dosage: 40 MG, QD
     Route: 048
     Dates: start: 20030919, end: 20030926
  13. ZOCOR [Suspect]
     Dosage: 40 MG, QD
     Route: 048
     Dates: start: 20030929, end: 20031008
  14. CLEXANE [Suspect]
     Indication: THROMBOSIS PROPHYLAXIS
     Dosage: 40 MG, BID
     Route: 058
     Dates: start: 20030919, end: 20031018
  15. PLAVIX [Suspect]
     Indication: THROMBOSIS PROPHYLAXIS
     Dosage: 75 MG, QD
     Route: 048
     Dates: start: 20030919, end: 20030926
  16. PLAVIX [Suspect]
     Dosage: 75 MG, BID
     Dates: start: 20030929, end: 20031018
  17. LASIX [Suspect]
     Indication: RENAL FAILURE
     Dosage: 1-1-1-1: 1-1/2-0
     Dates: start: 20030919, end: 20030926
  18. LASIX [Suspect]
     Dosage: 1-1-1-1: 1-1/2-0
     Dates: start: 20030929, end: 20031002
  19. LASIX [Suspect]
     Dosage: 1-1-1-1: 1-1/2-0
     Dates: start: 20031015
  20. PANTOZOL [Suspect]
     Indication: PROPHYLAXIS
     Dosage: 1-0-1; 0-0-1; 1-0-0
     Route: 048
     Dates: start: 20030919, end: 20030926
  21. PANTOZOL [Suspect]
     Dosage: 1-0-1; 0-0-1; 1-0-0
     Dates: start: 20030929
  22. CORDAREX [Suspect]
     Dosage: 200 MG, QD
     Route: 048
     Dates: start: 20030923, end: 20030926
  23. CORDAREX [Suspect]
     Dosage: 200 MG, BID
     Route: 048
     Dates: start: 20030929
  24. ASPIRIN [Suspect]
     Indication: CORONARY ARTERY DISEASE
     Dosage: 100 MG, QD
     Route: 048
     Dates: start: 20030924, end: 20030926
  25. ASPIRIN [Suspect]
     Dosage: 100 MG, QD
     Route: 048
     Dates: start: 20030929
  26. CETRIZIN [Suspect]
     Indication: RASH
     Dosage: 1 DF, QD
     Route: 048
     Dates: start: 20030928, end: 20031008
  27. DECORTIN [Suspect]
     Indication: RASH
     Dosage: 25 UP TO 50MG/DAY
     Route: 048

REACTIONS (10)
  - AGITATION [None]
  - BLISTER [None]
  - DERMATITIS ALLERGIC [None]
  - DIZZINESS [None]
  - HYPERTENSION [None]
  - LIP EROSION [None]
  - PRURITUS [None]
  - RASH [None]
  - SLEEP DISORDER [None]
  - STEVENS-JOHNSON SYNDROME [None]
